FAERS Safety Report 6839214-X (Version None)
Quarter: 2010Q3

REPORT INFORMATION
  Report Type: 
  Country: None (occurrence: None)
  Receive Date: 20100708
  Receipt Date: 20100628
  Transmission Date: 20110219
  Serious: Yes (Death)
  Sender: FDA-Public Use
  Company Number: 20100297

PATIENT
  Age: 65 Year
  Sex: Female

DRUGS (1)
  1. VENOFER [Suspect]
     Dates: start: 20090101, end: 20090101

REACTIONS (1)
  - DEATH [None]
